FAERS Safety Report 6289488-1 (Version None)
Quarter: 2009Q3

REPORT INFORMATION
  Report Type: 
  Country: None (occurrence: None)
  Receive Date: 20090728
  Receipt Date: 20090728
  Transmission Date: 20100115
  Serious: Yes (Other)
  Sender: FDA-Public Use
  Company Number: None

PATIENT
  Age: 71 Year
  Sex: Male
  Weight: 56.6996 kg

DRUGS (1)
  1. ZYRTEC [Suspect]
     Indication: PRURITUS
     Dosage: 10 MG ONCE EVERY MORNING PO
     Route: 048
     Dates: start: 20090726, end: 20090726

REACTIONS (2)
  - DIZZINESS [None]
  - SOMNOLENCE [None]
